FAERS Safety Report 7969407-X (Version None)
Quarter: 2011Q4

REPORT INFORMATION
  Report Type: 
  Country: None (occurrence: None)
  Receive Date: 20111211
  Receipt Date: 20111128
  Transmission Date: 20120403
  Serious: Yes (Hospitalization)
  Sender: FDA-Public Use
  Company Number: ES-MYLANLABS-2011S1024750

PATIENT
  Age: 30 Year
  Sex: Female

DRUGS (1)
  1. VENLAFAXINE [Suspect]
     Indication: INTENTIONAL OVERDOSE
     Route: 065

REACTIONS (4)
  - SUICIDE ATTEMPT [None]
  - PULMONARY OEDEMA [None]
  - INTENTIONAL OVERDOSE [None]
  - STRESS CARDIOMYOPATHY [None]
